FAERS Safety Report 8444790-X (Version None)
Quarter: 2012Q2

REPORT INFORMATION
  Report Type: 
  Country: None (occurrence: None)
  Receive Date: 20120612
  Receipt Date: 20120612
  Transmission Date: 20120825
  Serious: Yes (Life-Threatening, Other)
  Sender: FDA-Public Use
  Company Number: None

PATIENT
  Age: 55 Year
  Sex: Female
  Weight: 68.4932 kg

DRUGS (2)
  1. ESTRADIOL AND NORETHINDRONE ACETATE [Suspect]
     Dosage: SEE ABOVE NIGHTLY PO
     Route: 048
     Dates: start: 20101130, end: 20120331
  2. ACTIVELLA [Suspect]
     Indication: MENOPAUSAL SYMPTOMS
     Dosage: SEE ABOVE' NIGHTLY PO
     Route: 048
     Dates: start: 20080801, end: 20101101

REACTIONS (1)
  - PRODUCT FORMULATION ISSUE [None]
